FAERS Safety Report 8501585-6 (Version None)
Quarter: 2012Q3

REPORT INFORMATION
  Report Type: 
  Country: None (occurrence: None)
  Receive Date: 20120710
  Receipt Date: 20120625
  Transmission Date: 20120928
  Serious: Yes (Other)
  Sender: FDA-Public Use
  Company Number: NL-WATSON-2012-11678

PATIENT
  Age: 70 Year
  Sex: Female

DRUGS (3)
  1. NAPROXEN [Suspect]
     Indication: MYOPATHY
     Dosage: 500 MG, TID
     Route: 065
  2. PREDNISONE TAB [Suspect]
     Indication: ASTHMA
     Dosage: 15 MG, DAILY
     Route: 065
  3. NAPROXEN [Suspect]
     Indication: BONE PAIN

REACTIONS (2)
  - HYPOALDOSTERONISM [None]
  - CUSHING'S SYNDROME [None]
